FAERS Safety Report 7546801-2 (Version None)
Quarter: 2011Q2

REPORT INFORMATION
  Report Type: 
  Country: None (occurrence: None)
  Receive Date: 20110614
  Receipt Date: 20110607
  Transmission Date: 20111010
  Serious: Yes (Death)
  Sender: FDA-Public Use
  Company Number: IT-ROCHE-781205

PATIENT
  Sex: Male

DRUGS (2)
  1. CAPECITABINE [Suspect]
     Route: 048
     Dates: start: 20110517, end: 20110523
  2. OXALIPLATIN [Concomitant]
     Dates: start: 20110516, end: 20110516

REACTIONS (1)
  - SUDDEN DEATH [None]
